FAERS Safety Report 6832210-8 (Version None)
Quarter: 2010Q3

REPORT INFORMATION
  Report Type: 
  Country: None (occurrence: None)
  Receive Date: 20100707
  Receipt Date: 20100621
  Transmission Date: 20110219
  Serious: Yes (Other)
  Sender: FDA-Public Use
  Company Number: JP-SOLVAY-00310003600

PATIENT
  Age: 40 Year
  Sex: Male

DRUGS (7)
  1. FLUVOXAMINE MALEATE [Suspect]
     Indication: ANXIETY
     Dosage: 100 MILLIGRAM(S), ORAL; 25 MILLIGRAM(S), 50 MILLIGRAM(S) ORAL
     Route: 048
     Dates: start: 20100201, end: 20100101
  2. FLUVOXAMINE MALEATE [Suspect]
     Indication: ANXIETY
     Dosage: 100 MILLIGRAM(S), ORAL; 25 MILLIGRAM(S), 50 MILLIGRAM(S) ORAL
     Route: 048
     Dates: start: 20100430, end: 20100503
  3. FLUVOXAMINE MALEATE [Suspect]
     Indication: ANXIETY
     Dosage: 100 MILLIGRAM(S), ORAL; 25 MILLIGRAM(S), 50 MILLIGRAM(S) ORAL
     Route: 048
     Dates: start: 20100504, end: 20100507
  4. FAMOTIDINE [Suspect]
     Indication: PRODUCT USED FOR UNKNOWN INDICATION
     Dosage: 40 MILLIGRAM(S) ORAL
     Route: 048
     Dates: start: 20100401, end: 20100507
  5. GASMOTIN (MOSAPRIDE CITRATE) [Concomitant]
  6. COREMINAL (FLUTAZOLAM) [Concomitant]
  7. ATENENTOIN (ALDIOXA) [Concomitant]

REACTIONS (1)
  - CONVULSION [None]
